FAERS Safety Report 8072680-3 (Version None)
Quarter: 2011Q4

REPORT INFORMATION
  Report Type: 
  Country: None (occurrence: None)
  Receive Date: 20111221
  Receipt Date: 20111025
  Transmission Date: 20120403
  Serious: Yes (Other)
  Sender: FDA-Public Use
  Company Number: PHEH2011US03579

PATIENT
  Age: 80 Year
  Sex: Male

DRUGS (3)
  1. EXJADE [Suspect]
     Indication: IRON OVERLOAD
     Dosage: 1750 MG, QD
     Dates: start: 20110827, end: 20110903
  2. AMLODIPINE BESYLATE AND BENAZEPRIL HCL [Concomitant]
  3. PRILOSEC [Concomitant]

REACTIONS (9)
  - MOOD DISORDER DUE TO A GENERAL MEDICAL CONDITION [None]
  - RENAL FAILURE [None]
  - RASH [None]
  - RENAL DISORDER [None]
  - SWELLING FACE [None]
  - OEDEMA MOUTH [None]
  - DIARRHOEA [None]
  - STOMATITIS [None]
  - BLOOD CREATININE INCREASED [None]
